FAERS Safety Report 8583822-5 (Version None)
Quarter: 2012Q3

REPORT INFORMATION
  Report Type: 
  Country: None (occurrence: None)
  Receive Date: 20120810
  Receipt Date: 20120801
  Transmission Date: 20120928
  Serious: Yes (Other)
  Sender: FDA-Public Use
  Company Number: CN-009507513-1208CHN001604

PATIENT

DRUGS (3)
  1. CEFTIZOXIME [Concomitant]
     Indication: CEREBRAL INFARCTION
     Dosage: UNK
  2. IMIPENEM AND CILASTATIN SODIUM [Suspect]
     Indication: LUNG INFECTION
     Dosage: 0.5 G, Q8H
  3. CEFTIZOXIME [Concomitant]
     Indication: LUNG INFECTION

REACTIONS (1)
  - EPILEPSY [None]
